FAERS Safety Report 10360714 (Version 2)
Quarter: 2014Q3

REPORT INFORMATION
  Report Type: Report from Study
  Country: US (occurrence: US)
  Receive Date: 20140804
  Receipt Date: 20140818
  Transmission Date: 20150326
  Serious: Yes (Hospitalization)
  Sender: FDA-Public Use
  Company Number: US-BAYER-2014-112952

PATIENT
  Age: 47 Year
  Sex: Female

DRUGS (1)
  1. BETASERON [Suspect]
     Active Substance: INTERFERON BETA-1B
     Indication: RELAPSING-REMITTING MULTIPLE SCLEROSIS
     Dosage: 8 MIU, QOD
     Route: 058
     Dates: start: 20140425, end: 20140723

REACTIONS (9)
  - Pain [Not Recovered/Not Resolved]
  - Dizziness [None]
  - Fibula fracture [Not Recovered/Not Resolved]
  - Fall [None]
  - Abnormal dreams [Not Recovered/Not Resolved]
  - Drug dose omission [Not Recovered/Not Resolved]
  - Tibia fracture [Not Recovered/Not Resolved]
  - Accident at home [None]
  - Poor quality sleep [Not Recovered/Not Resolved]

NARRATIVE: CASE EVENT DATE: 20140723
